FAERS Safety Report 10796006 (Version 1)
Quarter: 2015Q1

REPORT INFORMATION
  Report Type: Spontaneous
  Country: US (occurrence: US)
  Receive Date: 20150216
  Receipt Date: 20150216
  Transmission Date: 20150721
  Serious: Yes (Hospitalization, Other)
  Sender: FDA-Public Use
  Company Number: US-AUROBINDO-AUR-APL-2015-01200

PATIENT
  Age: 53 Year
  Sex: Male

DRUGS (2)
  1. DIVALPROEX SODIUM EXTENDED-RELEASE TABLETS USP 500MG [Suspect]
     Active Substance: DIVALPROEX SODIUM
     Indication: PRODUCT USED FOR UNKNOWN INDICATION
     Dosage: 90 X 500 MG
     Route: 065
  2. BENZATROPINE [Suspect]
     Active Substance: BENZTROPINE
     Indication: PRODUCT USED FOR UNKNOWN INDICATION
     Dosage: 15 X 2 MG
     Route: 065

REACTIONS (8)
  - Polyuria [Unknown]
  - Toxicity to various agents [Unknown]
  - Lethargy [Unknown]
  - Suicide attempt [Unknown]
  - Overdose [Unknown]
  - Nephrogenic diabetes insipidus [Unknown]
  - Agitation [Unknown]
  - Laboratory test abnormal [Recovered/Resolved]
